FAERS Safety Report 7368935-8 (Version None)
Quarter: 2011Q1

REPORT INFORMATION
  Report Type: 
  Country: None (occurrence: None)
  Receive Date: 20110321
  Receipt Date: 20110321
  Transmission Date: 20110831
  Serious: Yes (Hospitalization)
  Sender: FDA-Public Use
  Company Number: None

PATIENT
  Sex: Female
  Weight: 49 kg

DRUGS (15)
  1. CHLORPHENIRAMINE MALEATE [Concomitant]
  2. NORZYME [Concomitant]
  3. PACLITAXEL [Suspect]
     Dosage: 260 MG
  4. METOCLOPRAMIDE HCL [Concomitant]
  5. L-ORNITHINE-L-ASPARTATE [Concomitant]
  6. CIMETIDINE [Concomitant]
  7. ALPRAZOLAM [Concomitant]
  8. URSODESOXYCHOLIC ACID [Concomitant]
  9. CARBOPLATIN [Suspect]
     Dosage: 3)CARBOPLATIN (AUC5,5 30 MG) +PACLITAXEL (175MG/M2, 260 MG ) 14/FEB/2011
  10. CARBOPLATIN [Suspect]
     Dosage: 636 MG (1)2) CSIPLATIN 75 MG(DAY 1 ,DAY29)+ RT (5 WEEKS); 20/DEC/2010*21/JAN/2011  3)CARBOPLATIN (
  11. PENNEL [Concomitant]
  12. DEXAMETHASONE [Concomitant]
  13. RAMOSETRON [Concomitant]
  14. RANITIDINE HCL [Concomitant]
  15. CARBOPLATIN [Suspect]
     Dosage: 40CARBOPLATIN(AUC6,6 36 MG) +PACLITAXEL (175 MG/M2, 260 MG) 07/MAR/2011 5)6) TWICE REAMAIN

REACTIONS (1)
  - URTICARIA [None]
